FAERS Safety Report 12358618 (Version 1)
Quarter: 2016Q2

REPORT INFORMATION
  Report Type: Spontaneous
  Country: US (occurrence: US)
  Receive Date: 20160512
  Receipt Date: 20160512
  Transmission Date: 20160815
  Serious: No
  Sender: FDA-Public Use
  Company Number: US-HORIZON-ACT-0114-2016

PATIENT
  Age: 10 Year
  Sex: Male

DRUGS (5)
  1. ACTIMMUNE [Suspect]
     Active Substance: INTERFERON GAMMA-1B
     Indication: CHRONIC GRANULOMATOUS DISEASE
     Dosage: 0.27 ML TIW
     Route: 058
  2. BACTRIM [Concomitant]
     Active Substance: SULFAMETHOXAZOLE\TRIMETHOPRIM
  3. DIAZEPAM. [Concomitant]
     Active Substance: DIAZEPAM
  4. ITRACONAZOLE. [Concomitant]
     Active Substance: ITRACONAZOLE
  5. IBUPROFEN. [Concomitant]
     Active Substance: IBUPROFEN

REACTIONS (2)
  - Malaise [Recovered/Resolved]
  - Therapy cessation [Unknown]
